FAERS Safety Report 7490051-5 (Version None)
Quarter: 2011Q2

REPORT INFORMATION
  Report Type: 
  Country: None (occurrence: None)
  Receive Date: 20110517
  Receipt Date: 20110517
  Transmission Date: 20111010
  Serious: Yes (Other)
  Sender: FDA-Public Use
  Company Number: None

PATIENT
  Age: 47 Year
  Sex: Female
  Weight: 68.0396 kg

DRUGS (1)
  1. CIPROFLOXACIN [Suspect]
     Indication: CAMPYLOBACTER INTESTINAL INFECTION
     Dosage: 500 MG 2 TABLETS PER DAY PO
     Route: 048
     Dates: start: 20110111, end: 20110121

REACTIONS (4)
  - PARAESTHESIA [None]
  - FEELING ABNORMAL [None]
  - TENDON PAIN [None]
  - VULVOVAGINAL MYCOTIC INFECTION [None]
